FAERS Safety Report 4636437-5 (Version None)
Quarter: 2005Q2

REPORT INFORMATION
  Report Type: 
  Country: None (occurrence: None)
  Receive Date: 20050413
  Receipt Date: 20050413
  Transmission Date: 20051028
  Serious: No
  Sender: FDA-Public Use
  Company Number: None

PATIENT
  Sex: Male
  Weight: 83.7 kg

DRUGS (6)
  1. CISPLATIN [Suspect]
     Dosage: 100 MG/M2 ON DAYS  1, 22, AND 43
     Dates: start: 20050127
  2. SFX [Suspect]
     Dosage: 70 GY/35 FRACTIONS/7 WEEKS
  3. HYDROCODONE BITARTRATE [Concomitant]
  4. LIPITOR [Concomitant]
  5. METOPROLOL TARTRATE [Concomitant]
  6. KYLOXYLIN [Concomitant]

REACTIONS (8)
  - ACUTE RESPIRATORY FAILURE [None]
  - FEBRILE NEUTROPENIA [None]
  - HAEMODIALYSIS [None]
  - LUNG INFILTRATION [None]
  - MUCOSAL INFLAMMATION [None]
  - PNEUMONITIS [None]
  - PULMONARY SEPSIS [None]
  - RENAL FAILURE [None]
